FAERS Safety Report 6492970-5 (Version None)
Quarter: 2009Q4

REPORT INFORMATION
  Report Type: 
  Country: None (occurrence: None)
  Receive Date: 20091214
  Receipt Date: 20091207
  Transmission Date: 20100525
  Serious: Yes (Life-Threatening, Hospitalization)
  Sender: FDA-Public Use
  Company Number: US-GILEAD-2009-0025844

PATIENT
  Sex: Female

DRUGS (2)
  1. LETAIRIS [Suspect]
     Indication: PULMONARY ARTERIAL HYPERTENSION
     Route: 048
     Dates: start: 20091111, end: 20091125
  2. LETAIRIS [Suspect]
     Dates: end: 20090304

REACTIONS (6)
  - DECREASED ACTIVITY [None]
  - DYSPNOEA [None]
  - NAUSEA [None]
  - OEDEMA [None]
  - PULMONARY OEDEMA [None]
  - UNEVALUABLE EVENT [None]
